FAERS Safety Report 10765004 (Version 3)
Quarter: 2015Q2

REPORT INFORMATION
  Report Type: Spontaneous
  Country: US (occurrence: US)
  Receive Date: 20150205
  Receipt Date: 20150515
  Transmission Date: 20150821
  Serious: No
  Sender: FDA-Public Use
  Company Number: US-PFIZER INC-2015045671

PATIENT
  Age: 53 Year
  Sex: Male
  Weight: 132 kg

DRUGS (1)
  1. LYRICA [Suspect]
     Active Substance: PREGABALIN
     Indication: ANGIOPATHY
     Dosage: 300 MG, 2X/DAY MORNING AND EVENING
     Dates: start: 2014

REACTIONS (5)
  - Peripheral swelling [Not Recovered/Not Resolved]
  - Drug ineffective [Not Recovered/Not Resolved]
  - Product physical consistency issue [Unknown]
  - Pain [Unknown]
  - Product physical issue [Unknown]

NARRATIVE: CASE EVENT DATE: 201411
